FAERS Safety Report 13328836 (Version 1)
Quarter: 2017Q1

REPORT INFORMATION
  Report Type: Spontaneous
  Country: US (occurrence: US)
  Receive Date: 20170312
  Receipt Date: 20170312
  Transmission Date: 20170428
  Serious: Yes (Hospitalization, Other)
  Sender: FDA-Public Use
  Company Number: None

PATIENT
  Age: 61 Year
  Sex: Female
  Weight: 63 kg

DRUGS (1)
  1. ROBITUSSIN 12 HOUR COUGH RELIEF [Suspect]
     Active Substance: DEXTROMETHORPHAN HYDROBROMIDE
     Indication: MALAISE
     Dosage: ?          QUANTITY:1 10 ML;?
     Route: 048
     Dates: start: 20170308, end: 20170309

REACTIONS (4)
  - Blood pressure decreased [None]
  - Blood sodium increased [None]
  - Blood potassium decreased [None]
  - Loss of consciousness [None]

NARRATIVE: CASE EVENT DATE: 20170309
